FAERS Safety Report 8261169 (Version 7)
Quarter: 2017Q1

REPORT INFORMATION
  Report Type: Spontaneous
  Country: IT (occurrence: IT)
  Receive Date: 20111123
  Receipt Date: 20170323
  Transmission Date: 20170429
  Serious: Yes (Life-Threatening, Other)
  Sender: FDA-Public Use
  Company Number: IT-PFIZER INC-2011282523

PATIENT
  Age: 8 Year
  Sex: Male

DRUGS (2)
  1. AIMAFIX [Suspect]
     Active Substance: COAGULATION FACTOR IX HUMAN
     Dosage: 50 IU/KG, FOR 5 DAYS
     Dates: start: 201206
  2. BENEFIX [Suspect]
     Active Substance: COAGULATION FACTOR IX RECOMBINANT HUMAN\ISOPROPYL ALCOHOL
     Indication: FACTOR IX DEFICIENCY
     Dosage: 1000 IU, UNK
     Route: 042
     Dates: start: 20111010, end: 20111014

REACTIONS (7)
  - Respiratory arrest [Recovered/Resolved]
  - Anaphylactic reaction [Unknown]
  - Factor IX inhibition [Recovered/Resolved]
  - Spinal epidural haematoma [Unknown]
  - Muscle haemorrhage [Unknown]
  - Cyanosis [Recovered/Resolved]
  - Haemarthrosis [None]

NARRATIVE: CASE EVENT DATE: 2011
